FAERS Safety Report 16297409 (Version 5)
Quarter: 2019Q3

REPORT INFORMATION
  Report Type: Report from Study
  Country: US (occurrence: US)
  Receive Date: 20190510
  Receipt Date: 20190828
  Transmission Date: 20191004
  Serious: Yes (Hospitalization, Other)
  Sender: FDA-Public Use
  Company Number: US-TAIHO ONCOLOGY  INC-EU-2019-01497

PATIENT
  Age: 58 Year
  Sex: Male
  Weight: 59.02 kg

DRUGS (3)
  1. LONSURF [Suspect]
     Active Substance: TIPIRACIL HYDROCHLORIDE\TRIFLURIDINE
     Indication: GASTRIC CANCER
  2. TRAMADOL. [Concomitant]
     Active Substance: TRAMADOL
     Indication: PAIN
  3. LONSURF [Suspect]
     Active Substance: TIPIRACIL HYDROCHLORIDE\TRIFLURIDINE
     Indication: GASTRIC CANCER
     Dosage: CURRENT CYCLE 1. DRUG WAS INTERRUPTED ON 02/MAY/2019 AND RESTARTED ON 13/MAY/2019?UNIT DOSE ONE 15 M
     Route: 048
     Dates: start: 20190429, end: 20190529

REACTIONS (6)
  - Chills [Unknown]
  - Asthenia [Not Recovered/Not Resolved]
  - Feeding disorder [Unknown]
  - Product dose omission [Recovered/Resolved]
  - Abdominal pain [Unknown]
  - Nausea [Unknown]

NARRATIVE: CASE EVENT DATE: 2019
